FAERS Safety Report 6044785-X (Version None)
Quarter: 2009Q1

REPORT INFORMATION
  Report Type: 
  Country: None (occurrence: None)
  Receive Date: 20090120
  Receipt Date: 20090116
  Transmission Date: 20090719
  Serious: Yes (Hospitalization)
  Sender: FDA-Public Use
  Company Number: US-GILEAD-2008-0019570

PATIENT
  Sex: Female
  Weight: 54.934 kg

DRUGS (12)
  1. LETAIRIS [Suspect]
     Indication: PULMONARY HYPERTENSION
     Route: 048
     Dates: start: 20081015
  2. REVATIO [Concomitant]
     Indication: PULMONARY HYPERTENSION
  3. DIGOXIN [Concomitant]
     Indication: PULMONARY HYPERTENSION
  4. COUMADIN [Concomitant]
     Indication: PULMONARY HYPERTENSION
  5. SPIRIVA [Concomitant]
     Indication: CHRONIC OBSTRUCTIVE PULMONARY DISEASE
  6. SPIRIVA [Concomitant]
     Indication: INTERSTITIAL LUNG DISEASE
  7. DEMADEX [Concomitant]
     Indication: PULMONARY HYPERTENSION
  8. FLUTICASONE PROPIONATE [Concomitant]
  9. ALDACTONE [Concomitant]
     Indication: PULMONARY HYPERTENSION
  10. KEPPRA [Concomitant]
     Indication: CONVULSION
  11. PRILOSEC [Concomitant]
  12. K-DUR [Concomitant]

REACTIONS (3)
  - CONVULSION [None]
  - FLUID OVERLOAD [None]
  - OEDEMA [None]
